FAERS Safety Report 18185685 (Version 2)
Quarter: 2021Q3

REPORT INFORMATION
  Report Type: Spontaneous
  Country: US (occurrence: US)
  Receive Date: 20200824
  Receipt Date: 20210923
  Transmission Date: 20211014
  Serious: No
  Sender: FDA-Public Use
  Company Number: US-CELLTRION INC.-2020US024591

PATIENT

DRUGS (3)
  1. INFLECTRA [Suspect]
     Active Substance: INFLIXIMAB-DYYB
     Dosage: 026 LOADING DOSE AND THEN EVERY 8 WEEKS
  2. INFLECTRA [Suspect]
     Active Substance: INFLIXIMAB-DYYB
     Dosage: 100MG VIALS?4 VIALS EVERY 8 WEEKS, FURTHER DETAILS UNKNOWN
     Route: 065
  3. INFLECTRA [Suspect]
     Active Substance: INFLIXIMAB-DYYB
     Indication: CROHN^S DISEASE
     Dosage: 100 MG VIAL (INCREASED TO 4 VIALS)
     Route: 065

REACTIONS (2)
  - Weight increased [Unknown]
  - Drug specific antibody present [Unknown]
